FAERS Safety Report 8263563-4 (Version None)
Quarter: 2012Q2

REPORT INFORMATION
  Report Type: 
  Country: None (occurrence: None)
  Receive Date: 20120405
  Receipt Date: 20120322
  Transmission Date: 20120825
  Serious: Yes (Other)
  Sender: FDA-Public Use
  Company Number: CHPA2012US005737

PATIENT
  Age: 60 Year
  Sex: Female

DRUGS (3)
  1. EXCEDRIN (MIGRAINE) [Concomitant]
     Dosage: UNK, UNK
  2. EXCEDRIN EXTRA STRENGTH TABLETS [Suspect]
     Indication: HEADACHE
     Dosage: 2 DF, BID
     Route: 048
     Dates: start: 19700101
  3. DILAUDID [Concomitant]

REACTIONS (1)
  - DRUG DEPENDENCE [None]
